FAERS Safety Report 18058447 (Version 1)
Quarter: 2020Q3

REPORT INFORMATION
  Report Type: Spontaneous
  Country: DK (occurrence: DK)
  Receive Date: 20200723
  Receipt Date: 20200723
  Transmission Date: 20201103
  Serious: Yes (Hospitalization, Disabling)
  Sender: FDA-Public Use
  Company Number: NVSC2020DK202128

PATIENT
  Age: 65 Year
  Sex: Male

DRUGS (3)
  1. DICILLIN [Suspect]
     Active Substance: DICLOXACILLIN SODIUM
     Dosage: UNK
     Route: 048
     Dates: start: 20180725
  2. DICILLIN [Suspect]
     Active Substance: DICLOXACILLIN SODIUM
     Indication: WOUND INFECTION BACTERIAL
     Dosage: UNK
     Route: 048
     Dates: start: 20180618
  3. CEFUROXIME. [Concomitant]
     Active Substance: CEFUROXIME
     Indication: WOUND INFECTION BACTERIAL
     Dosage: UNK
     Route: 042
     Dates: start: 20180622

REACTIONS (9)
  - Decreased appetite [Recovered/Resolved]
  - Fatigue [Unknown]
  - Nausea [Recovered/Resolved]
  - Back pain [Recovered/Resolved]
  - Tubulointerstitial nephritis [Not Recovered/Not Resolved]
  - Weight decreased [Recovered/Resolved]
  - Dyspnoea [Unknown]
  - Chronic kidney disease [Not Recovered/Not Resolved]
  - Vomiting [Recovered/Resolved]

NARRATIVE: CASE EVENT DATE: 201809
